FAERS Safety Report 21239952 (Version 1)
Quarter: 2022Q3

REPORT INFORMATION
  Report Type: Report from Study
  Country: US (occurrence: US)
  Receive Date: 20220822
  Receipt Date: 20220822
  Transmission Date: 20221027
  Serious: Yes (Death)
  Sender: FDA-Public Use
  Company Number: US-NOVARTISPH-NVSC2022US187357

PATIENT

DRUGS (1)
  1. PIQRAY [Suspect]
     Active Substance: ALPELISIB
     Indication: Product used for unknown indication
     Dosage: 300 MG ( TAKE 300 MG (TWO 150 MG TABLETS) BY MOUTH DAILY WITH ARIMIDEX 1 MG DAILY)
     Route: 048

REACTIONS (1)
  - Death [Fatal]
